FAERS Safety Report 11487099 (Version 1)
Quarter: 2015Q3

REPORT INFORMATION
  Report Type: Spontaneous
  Country: US (occurrence: US)
  Receive Date: 20150910
  Receipt Date: 20150910
  Transmission Date: 20151125
  Serious: No
  Sender: FDA-Public Use
  Company Number: US-PFIZER INC-2015296997

PATIENT
  Age: 74 Year
  Sex: Female
  Weight: 67 kg

DRUGS (4)
  1. PROVERA [Concomitant]
     Active Substance: MEDROXYPROGESTERONE ACETATE
     Indication: HORMONE REPLACEMENT THERAPY
  2. MEDROXYPROGESTERONE ACETATE. [Suspect]
     Active Substance: MEDROXYPROGESTERONE ACETATE
     Indication: HORMONE REPLACEMENT THERAPY
     Dosage: 5 MG, DAILY
     Route: 048
     Dates: start: 20150810, end: 201508
  3. PREMARIN [Concomitant]
     Active Substance: ESTROGENS, CONJUGATED
  4. METFORMIN [Concomitant]
     Active Substance: METFORMIN HYDROCHLORIDE

REACTIONS (8)
  - Neck pain [Recovered/Resolved]
  - Abdominal pain upper [Recovered/Resolved]
  - Musculoskeletal pain [Recovered/Resolved]
  - Adnexa uteri pain [Recovered/Resolved]
  - Product quality issue [Unknown]
  - Back pain [Recovered/Resolved]
  - Vision blurred [Unknown]
  - Drug hypersensitivity [Unknown]

NARRATIVE: CASE EVENT DATE: 20150810
